FAERS Safety Report 9514349 (Version 2)
Quarter: 2014Q1

REPORT INFORMATION
  Report Type: Report from Study
  Country: FR (occurrence: FR)
  Receive Date: 20130911
  Receipt Date: 20140310
  Transmission Date: 20141002
  Serious: Yes (Hospitalization)
  Sender: FDA-Public Use
  Company Number: PHHY2013FR098905

PATIENT
  Sex: Female

DRUGS (1)
  1. STI571 [Suspect]
     Dates: start: 20050623

REACTIONS (3)
  - Aplastic anaemia [Recovered/Resolved]
  - Normochromic normocytic anaemia [Recovered/Resolved]
  - Memory impairment [Unknown]
